FAERS Safety Report 9010396 (Version 2)
Quarter: 2013Q1

REPORT INFORMATION
  Report Type: Report from Study
  Country: US (occurrence: US)
  Receive Date: 20130109
  Receipt Date: 20130227
  Transmission Date: 20140127
  Serious: Yes (Other)
  Sender: FDA-Public Use
  Company Number: US-ACTELION-A-US2013-77145

PATIENT
  Age: 79 Year
  Sex: Female

DRUGS (3)
  1. VENTAVIS [Suspect]
     Indication: PULMONARY ARTERIAL HYPERTENSION
     Dosage: UNK
     Route: 055
  2. SILDENAFIL [Concomitant]
  3. ASPIRIN [Concomitant]

REACTIONS (6)
  - Iron deficiency anaemia [Recovering/Resolving]
  - Transfusion [Recovering/Resolving]
  - Mineral supplementation [Recovering/Resolving]
  - Pain in extremity [Unknown]
  - Cough [Unknown]
  - Fatigue [Unknown]
